FAERS Safety Report 6586269-6 (Version None)
Quarter: 2010Q1

REPORT INFORMATION
  Report Type: 
  Country: None (occurrence: None)
  Receive Date: 20100217
  Receipt Date: 20090129
  Transmission Date: 20100710
  Serious: Yes (Other)
  Sender: FDA-Public Use
  Company Number: US-ALLERGAN-0901098US

PATIENT
  Age: 79 Year
  Sex: Female

DRUGS (3)
  1. BOTOX [Suspect]
     Indication: TORTICOLLIS
     Dosage: 100 UNITS, SINGLE
     Route: 030
     Dates: start: 20090123, end: 20090123
  2. WARFARIN SODIUM [Concomitant]
     Dosage: 5 MG, UNK
  3. PREMARIN [Concomitant]
     Dosage: 3 MG, UNK

REACTIONS (3)
  - DYSPHAGIA [None]
  - NAUSEA [None]
  - NECK PAIN [None]
